FAERS Safety Report 8808217 (Version 1)
Quarter: 2012Q4

REPORT INFORMATION
  Report Type: 
  Country: US (occurrence: US)
  Receive Date: 20120926
  Receipt Date: 20120926
  Transmission Date: 20130627
  Serious: Yes (Hospitalization)
  Sender: FDA-Public Use
  Company Number: US-BIOGENIDEC-2012BI040320

PATIENT
  Age: 46 Year
  Sex: Female

DRUGS (1)
  1. TYSABRI [Suspect]
     Indication: MULTIPLE SCLEROSIS
     Route: 042
     Dates: start: 20120910

REACTIONS (4)
  - Unresponsive to stimuli [Recovered/Resolved]
  - Blood pressure immeasurable [Recovered/Resolved]
  - Dehydration [Recovered/Resolved]
  - Hypotension [Not Recovered/Not Resolved]
